FAERS Safety Report 6129322-3 (Version None)
Quarter: 2009Q1

REPORT INFORMATION
  Report Type: 
  Country: None (occurrence: None)
  Receive Date: 20090324
  Receipt Date: 20090313
  Transmission Date: 20090719
  Serious: Yes (Hospitalization)
  Sender: FDA-Public Use
  Company Number: FR-BIOGENIDEC-2009BI007913

PATIENT
  Age: 22 Year
  Sex: Female
  Weight: 57 kg

DRUGS (13)
  1. TYSABRI [Suspect]
     Indication: MULTIPLE SCLEROSIS
     Route: 042
     Dates: start: 20081201
  2. NEXIUM [Concomitant]
     Route: 048
  3. XATRAL LP [Concomitant]
     Indication: URINARY TRACT DISORDER
     Route: 048
     Dates: start: 20080801
  4. CERIS [Concomitant]
     Indication: URINARY TRACT DISORDER
     Route: 048
     Dates: start: 20080501
  5. MINIRIN [Concomitant]
     Indication: URINARY TRACT DISORDER
     Route: 045
     Dates: start: 20081201
  6. FORLAX [Concomitant]
     Indication: CONSTIPATION
     Route: 048
  7. EDUCTYL [Concomitant]
     Indication: CONSTIPATION
     Dates: start: 20081201
  8. NEURONTIN [Concomitant]
     Indication: NEURALGIA
     Route: 048
     Dates: start: 20081201
  9. CYMBALTA [Concomitant]
     Indication: ANXIETY
     Route: 048
     Dates: start: 20081201
  10. TOPALGIC [Concomitant]
     Indication: PAIN
     Route: 048
     Dates: start: 20081201
  11. XANAX [Concomitant]
     Indication: ANXIETY
     Route: 048
     Dates: start: 20081201
  12. PARACETAMOL [Concomitant]
     Indication: PAIN
     Route: 048
     Dates: start: 20081201
  13. PRIMPERAN [Concomitant]
     Indication: NAUSEA
     Route: 048
     Dates: start: 20081201

REACTIONS (1)
  - SYNCOPE [None]
